FAERS Safety Report 14331308 (Version 1)
Quarter: 2017Q4

REPORT INFORMATION
  Report Type: Report from Study
  Country: None (occurrence: BR)
  Receive Date: 20171228
  Receipt Date: 20171228
  Transmission Date: 20180321
  Serious: Yes (Death, Hospitalization, Other)
  Sender: FDA-Public Use
  Company Number: BR-ABBVIE-17K-020-2205428-00

PATIENT
  Age: 71 Year
  Sex: Male
  Weight: 64 kg

DRUGS (1)
  1. HUMIRA [Suspect]
     Active Substance: ADALIMUMAB
     Indication: RHEUMATOID ARTHRITIS
     Route: 058
     Dates: start: 20100101, end: 201710

REACTIONS (4)
  - Aortic aneurysm [Not Recovered/Not Resolved]
  - Abdominal pain [Recovered/Resolved]
  - Death [Fatal]
  - Vascular occlusion [Unknown]

NARRATIVE: CASE EVENT DATE: 2017
